FAERS Safety Report 8584605-2 (Version None)
Quarter: 2012Q3

REPORT INFORMATION
  Report Type: 
  Country: None (occurrence: None)
  Receive Date: 20120730
  Receipt Date: 20120720
  Transmission Date: 20120928
  Serious: Yes (Hospitalization, Other)
  Sender: FDA-Public Use
  Company Number: 2012HGS-003679

PATIENT
  Age: 53 Year
  Sex: Female
  Weight: 103.8737 kg

DRUGS (17)
  1. ASPIRIN [Concomitant]
  2. TRAMADOL HCL(TRAMADOL HYDROCHLORIDE)(TRAMADOL HYDROCHLORIDE) [Concomitant]
  3. CALCIUM WITH VITAMIN D(CALCIUM + VIT D)(CALCIUM CARBONATE, VITAMIN D N [Concomitant]
  4. TOPROL-XL [Concomitant]
  5. PAROXETINE HCL(PAROXETINE HYDROCHLORIDE)(PAROXETINE HYDROCHLORIDE) [Concomitant]
  6. PREDNISONE [Concomitant]
  7. FLEXERIL(CYCLOBENZAPRINE HYDROCHLORIDE)(CYCLOBENZAPRINE HYDROCHLORIDE) [Concomitant]
  8. LISINOPRIL [Concomitant]
  9. NEXIUM [Concomitant]
  10. BENLYSTA [Suspect]
     Indication: SYSTEMIC LUPUS ERYTHEMATOSUS
     Dosage: INTRAVENOUS DRIP
     Route: 042
     Dates: start: 20120423
  11. MINIPRESS(PRAZOSIN HYDROCHLORIDE)(PRAZOSIN HYDROCHLORIDE) [Concomitant]
  12. FISH OIL (FISH OIL)(FISH OIL) [Concomitant]
  13. MAGNESIUM OXIDE(MAGNESIUM OXIDE)(MAGNESIUM OXIDE) [Concomitant]
  14. ALLOPURINOL [Concomitant]
  15. OCUVITE(OCUVITE /01053801/)(ASCORBIC ACID, TOCOPHEROL, RETINOL) [Concomitant]
  16. VITAMIN D3(COLECALCIFEROL)(COLECALCIFEROL) [Concomitant]
  17. NEULASTA [Concomitant]

REACTIONS (1)
  - ENDOMETRIAL CANCER STAGE I [None]
